FAERS Safety Report 20689082 (Version 2)
Quarter: 2022Q2

REPORT INFORMATION
  Report Type: Other
  Country: FR (occurrence: FR)
  Receive Date: 20220408
  Receipt Date: 20220413
  Transmission Date: 20220721
  Serious: Yes (Hospitalization, Other)
  Sender: FDA-Public Use
  Company Number: None

PATIENT
  Age: 29 Year
  Sex: Female

DRUGS (5)
  1. TACROLIMUS [Suspect]
     Active Substance: TACROLIMUS
     Indication: Prophylaxis against transplant rejection
     Route: 048
     Dates: start: 20191114
  2. CELLCEPT [Suspect]
     Active Substance: MYCOPHENOLATE MOFETIL
     Indication: Prophylaxis against transplant rejection
     Route: 048
     Dates: start: 20191114
  3. PREDNISONE [Suspect]
     Active Substance: PREDNISONE
     Indication: Prophylaxis against transplant rejection
     Route: 048
     Dates: start: 20191114
  4. COMIRNATY [Suspect]
     Active Substance: TOZINAMERAN
     Indication: COVID-19 immunisation
     Dosage: 1 DF, UNKNOWN FREQ. (R1 )
     Route: 030
     Dates: start: 20220105
  5. SPIKEVAX [Concomitant]
     Active Substance: ELASOMERAN
     Indication: COVID-19 immunisation
     Dosage: 3 DF, UNKNOWN FREQ. (D1+D2+D3)
     Route: 030
     Dates: start: 20210518, end: 20210825

REACTIONS (2)
  - COVID-19 pneumonia [Recovering/Resolving]
  - Vaccination failure [Recovering/Resolving]

NARRATIVE: CASE EVENT DATE: 20220130
